FAERS Safety Report 13544644 (Version 1)
Quarter: 2017Q2

REPORT INFORMATION
  Report Type: Spontaneous
  Country: US (occurrence: US)
  Receive Date: 20170515
  Receipt Date: 20170515
  Transmission Date: 20170830
  Serious: Yes (Hospitalization)
  Sender: FDA-Public Use
  Company Number: US-GLENMARK PHARMACEUTICALS-2017GMK027466

PATIENT
  Age: 27 Year
  Sex: Male
  Weight: 25 kg

DRUGS (27)
  1. BUSPIRONE [Concomitant]
     Active Substance: BUSPIRONE HYDROCHLORIDE
     Dosage: 30 MG, TID (BY PEG)
     Route: 050
  2. BUSPIRONE [Concomitant]
     Active Substance: BUSPIRONE HYDROCHLORIDE
     Dosage: 20 MG, QID (BY PEG)
     Route: 050
  3. LORAZEPAM. [Concomitant]
     Active Substance: LORAZEPAM
     Dosage: 4 MG, IV EVERY 4 HOURS AS NEEDED
     Route: 042
  4. ACYCLOVIR                          /00587301/ [Concomitant]
     Active Substance: ACYCLOVIR
     Indication: ECZEMA HERPETICUM
     Dosage: UNK
     Route: 065
  5. NALOXONE [Concomitant]
     Active Substance: NALOXONE
     Dosage: 2.3 MG, UNK
     Route: 065
  6. HALOPERIDOL. [Concomitant]
     Active Substance: HALOPERIDOL
     Indication: INTENTIONAL SELF-INJURY
     Dosage: 30 MG, OD
     Route: 042
  7. TOPIRAMATE. [Suspect]
     Active Substance: TOPIRAMATE
     Indication: INTENTIONAL SELF-INJURY
     Dosage: 50 MG, BID (BY PEJ)
     Route: 050
  8. TOPIRAMATE. [Suspect]
     Active Substance: TOPIRAMATE
     Indication: AGITATION
  9. GABAPENTIN. [Suspect]
     Active Substance: GABAPENTIN
     Dosage: 500 MG, QID  (BY PEJ)
     Route: 050
  10. BUSPIRONE [Concomitant]
     Active Substance: BUSPIRONE HYDROCHLORIDE
     Indication: INTENTIONAL SELF-INJURY
     Dosage: 20 MG, (BY PEG AT 3 AM)
     Route: 050
  11. OXYCODONE [Concomitant]
     Active Substance: OXYCODONE
     Indication: PRODUCT USED FOR UNKNOWN INDICATION
     Dosage: 2.5 MG, (BY PEG EVERY 6 HOURS PRO RE NATA)
     Route: 050
  12. OXYCODONE [Concomitant]
     Active Substance: OXYCODONE
     Dosage: 27 MG, (BY PEG)
     Route: 050
  13. CHLORPROMAZINE. [Concomitant]
     Active Substance: CHLORPROMAZINE
     Indication: INTENTIONAL SELF-INJURY
     Dosage: 350 MG, OD
     Route: 042
  14. VALPROIC ACID. [Concomitant]
     Active Substance: VALPROIC ACID
     Indication: INTENTIONAL SELF-INJURY
     Dosage: 250 MG/5 ML, TID
     Route: 050
  15. FENTANYL. [Concomitant]
     Active Substance: FENTANYL
     Indication: FRACTURE
     Dosage: 25 ?G, (OCCASIONAL 1-TIME DOSES )
     Route: 042
  16. OLANZAPINE. [Concomitant]
     Active Substance: OLANZAPINE
     Indication: INTENTIONAL SELF-INJURY
     Dosage: 40 MG, OD (BY PEJ)
     Route: 050
  17. ACYCLOVIR                          /00587301/ [Concomitant]
     Active Substance: ACYCLOVIR
     Indication: DERMATITIS
  18. VANCOMYCIN [Concomitant]
     Active Substance: VANCOMYCIN
     Indication: PNEUMONIA ASPIRATION
     Dosage: UNK
     Route: 065
  19. LORAZEPAM. [Concomitant]
     Active Substance: LORAZEPAM
     Indication: AGITATION
     Dosage: 2 MG/ML, (EVERY 6 HOURS BY PEG)
     Route: 050
  20. NALOXONE [Concomitant]
     Active Substance: NALOXONE
     Dosage: 1.4 MG, UNK
     Route: 065
  21. RISPERIDONE. [Concomitant]
     Active Substance: RISPERIDONE
     Indication: INTENTIONAL SELF-INJURY
     Dosage: 2 MG, TID (BY PEG)
     Route: 050
  22. FLUOXETINE [Concomitant]
     Active Substance: FLUOXETINE HYDROCHLORIDE
     Indication: INTENTIONAL SELF-INJURY
     Dosage: 60 MG, QD (BY PEG)
     Route: 050
  23. NALOXONE [Concomitant]
     Active Substance: NALOXONE
     Indication: INTENTIONAL SELF-INJURY
     Dosage: 1 MG, UNK
     Route: 065
  24. GABAPENTIN. [Suspect]
     Active Substance: GABAPENTIN
     Indication: INTENTIONAL SELF-INJURY
     Dosage: 500 MG, QID  (BY PEG)
     Route: 050
  25. ACYCLOVIR                          /00587301/ [Concomitant]
     Active Substance: ACYCLOVIR
     Indication: HYPERKERATOSIS
  26. PIPERACILLIN/TAZOBACTAM [Concomitant]
     Active Substance: PIPERACILLIN SODIUM\TAZOBACTAM SODIUM
     Indication: PNEUMONIA ASPIRATION
     Dosage: UNK
     Route: 065
  27. CLONIDINE. [Concomitant]
     Active Substance: CLONIDINE
     Indication: INTENTIONAL SELF-INJURY
     Dosage: 0.1 MG, TID (BY PEJ)
     Route: 065

REACTIONS (8)
  - Intentional self-injury [Unknown]
  - Condition aggravated [Unknown]
  - Therapeutic response unexpected [Unknown]
  - Drug ineffective for unapproved indication [Unknown]
  - No adverse event [Unknown]
  - Product use in unapproved indication [Unknown]
  - Sedation [Unknown]
  - Incorrect route of drug administration [Unknown]
